FAERS Safety Report 22168377 (Version 2)
Quarter: 2023Q2

REPORT INFORMATION
  Report Type: Spontaneous
  Country: HK (occurrence: HK)
  Receive Date: 20230403
  Receipt Date: 20230425
  Transmission Date: 20230722
  Serious: Yes (Death, Other)
  Sender: FDA-Public Use
  Company Number: HK-BAYER-2023A040263

PATIENT
  Age: 57 Year
  Sex: Male

DRUGS (5)
  1. STIVARGA [Suspect]
     Active Substance: REGORAFENIB
     Indication: Colorectal cancer metastatic
     Dosage: UNK
     Dates: start: 201312, end: 201402
  2. STIVARGA [Suspect]
     Active Substance: REGORAFENIB
     Indication: Metastases to lung
  3. STIVARGA [Suspect]
     Active Substance: REGORAFENIB
     Indication: Metastases to liver
  4. STIVARGA [Suspect]
     Active Substance: REGORAFENIB
     Indication: Metastases to lymph nodes
  5. PANITUMUMAB [Concomitant]
     Active Substance: PANITUMUMAB
     Dosage: 6 MG/M2, Q2WK
     Dates: start: 201402, end: 2014

REACTIONS (3)
  - Death [Fatal]
  - Colorectal cancer metastatic [None]
  - Hepatic failure [None]

NARRATIVE: CASE EVENT DATE: 20140201
